FAERS Safety Report 12925834 (Version 3)
Quarter: 2017Q1

REPORT INFORMATION
  Report Type: Spontaneous
  Country: US (occurrence: US)
  Receive Date: 20161108
  Receipt Date: 20170215
  Transmission Date: 20170428
  Serious: Yes (Other)
  Sender: FDA-Public Use
  Company Number: US-SA-2016SA189737

PATIENT
  Age: 72 Year
  Sex: Male

DRUGS (10)
  1. ALIROCUMAB PREFILLED PEN [Concomitant]
     Active Substance: ALIROCUMAB
     Indication: HYPERLIPIDAEMIA
     Dates: start: 20160825
  2. LOVAZA [Concomitant]
     Active Substance: OMEGA-3-ACID ETHYL ESTERS
  3. PRALUENT [Suspect]
     Active Substance: ALIROCUMAB
     Indication: HYPERLIPIDAEMIA
     Route: 058
     Dates: start: 20160825
  4. PANTHENOL/RETINOL/THIAMINE HYDROCHLORIDE/ASCORBIC ACID/ERGOCALCIFEROL/FOLIC ACID/RIBOFLAVIN/NICOTINA [Concomitant]
  5. MELATONIN [Concomitant]
     Active Substance: MELATONIN
  6. DORZOLAMIDE/TIMOLOL [Concomitant]
  7. DORZOLAMIDE [Concomitant]
     Active Substance: DORZOLAMIDE
  8. ASPIRIN. [Concomitant]
     Active Substance: ASPIRIN
  9. LUMIGAN [Concomitant]
     Active Substance: BIMATOPROST
  10. GLUCOSAMINE [Concomitant]
     Active Substance: GLUCOSAMINE

REACTIONS (5)
  - Product use issue [Unknown]
  - Dizziness [Unknown]
  - Malaise [Unknown]
  - Fatigue [Unknown]
  - Tooth abscess [Unknown]

NARRATIVE: CASE EVENT DATE: 2016
